FAERS Safety Report 9221022 (Version 7)
Quarter: 2015Q4

REPORT INFORMATION
  Report Type: Report from Study
  Country: JP (occurrence: JP)
  Receive Date: 20130409
  Receipt Date: 20151007
  Transmission Date: 20160305
  Serious: Yes (Hospitalization, Other)
  Sender: FDA-Public Use
  Company Number: JP-009507513-2008SP025455

PATIENT
  Age: 7 Month
  Sex: Male
  Weight: 9 kg

DRUGS (6)
  1. AROGLYCEM [Suspect]
     Active Substance: DIAZOXIDE
     Dosage: 25 MG, BID
     Route: 048
     Dates: start: 20120220, end: 20120222
  2. AROGLYCEM [Suspect]
     Active Substance: DIAZOXIDE
     Dosage: 50 MG, TID
     Route: 048
     Dates: start: 20120227, end: 20120228
  3. AROGLYCEM [Suspect]
     Active Substance: DIAZOXIDE
     Dosage: 25 MG, TID
     Route: 048
     Dates: start: 20120223, end: 20120226
  4. AROGLYCEM [Suspect]
     Active Substance: DIAZOXIDE
     Indication: HYPOGLYCAEMIA
     Dosage: 25 MG, TID
     Route: 048
     Dates: start: 20081130, end: 20081205
  5. AROGLYCEM [Suspect]
     Active Substance: DIAZOXIDE
     Dosage: 41.6 MG, TID
     Route: 048
     Dates: start: 20081206, end: 20081209
  6. AROGLYCEM [Suspect]
     Active Substance: DIAZOXIDE
     Dosage: 41.6 MG, TID
     Route: 048
     Dates: start: 20081216, end: 20081217

REACTIONS (3)
  - Purpura [Recovered/Resolved]
  - Platelet count decreased [Recovered/Resolved]
  - Platelet count decreased [Recovered/Resolved]

NARRATIVE: CASE EVENT DATE: 20081209
